FAERS Safety Report 9799695 (Version 2)
Quarter: 2014Q1

REPORT INFORMATION
  Report Type: Spontaneous
  Country: US (occurrence: US)
  Receive Date: 20140106
  Receipt Date: 20140106
  Transmission Date: 20141002
  Serious: No
  Sender: FDA-Public Use
  Company Number: US-GILEAD-2010-0031613

PATIENT
  Age: 88 Year
  Sex: Female
  Weight: 47.17 kg

DRUGS (18)
  1. LETAIRIS [Suspect]
     Indication: PULMONARY ARTERIAL HYPERTENSION
     Route: 048
     Dates: start: 20100708
  2. REVATIO [Concomitant]
  3. BUMETANIDE [Concomitant]
  4. ADULT LOW DOSE ASA [Concomitant]
  5. DIGOXIN [Concomitant]
  6. OXYGEN [Concomitant]
  7. PRILOSEC [Concomitant]
  8. MISOPROSTOL [Concomitant]
  9. TYLENOL EX-STR [Concomitant]
  10. GABAPENTIN [Concomitant]
  11. OXYCODONE [Concomitant]
  12. RESTASIS 0.05% EYE EMULSION [Concomitant]
  13. TRAVATAN 0.004% EYE DROP [Concomitant]
  14. BRIMONIDINE 0.2% EYE DROP [Concomitant]
  15. MULTIVITAMIN [Concomitant]
  16. POTASSIUM CHLORIDE [Concomitant]
  17. VITAMIN C [Concomitant]
  18. VITAMIN E [Concomitant]

REACTIONS (1)
  - Oedema [Unknown]
